FAERS Safety Report 5931361-X (Version None)
Quarter: 2009Q1

REPORT INFORMATION
  Report Type: 
  Country: None (occurrence: None)
  Receive Date: 20081024
  Receipt Date: 20081024
  Transmission Date: 20090719
  Serious: Yes (Hospitalization)
  Sender: FDA-Public Use
  Company Number: None

PATIENT
  Sex: Female
  Weight: 95.709 kg

DRUGS (2)
  1. RISPERIDONE [Suspect]
     Indication: PSYCHOTIC DISORDER
     Dosage: 2MG BID PO
     Route: 048
     Dates: start: 20080725, end: 20080728
  2. LITHIUM CARBONATE [Suspect]
     Indication: BIPOLAR DISORDER
     Dosage: 600MG BID PO
     Route: 048
     Dates: start: 20080725, end: 20080728

REACTIONS (2)
  - PRURITUS [None]
  - RASH MACULO-PAPULAR [None]
